FAERS Safety Report 5851910-X (Version None)
Quarter: 2008Q3

REPORT INFORMATION
  Report Type: 
  Country: None (occurrence: None)
  Receive Date: 20080819
  Receipt Date: 20080804
  Transmission Date: 20090109
  Serious: Yes (Hospitalization)
  Sender: FDA-Public Use
  Company Number: GB-DEXPHARM-20080876

PATIENT
  Age: 62 Year
  Sex: Male

DRUGS (5)
  1. OMEPRAZOLE [Suspect]
     Indication: ABDOMINAL PAIN UPPER
     Dosage: 1/1 DAYS (20 MG MILLGRAM(S); ORAL
     Route: 048
     Dates: start: 20080528, end: 20080708
  2. AMOXICILLIN [Concomitant]
  3. AMPHOTERICIN B [Concomitant]
  4. CLARITHROMYCIN [Concomitant]
  5. LISINOPRIL [Concomitant]

REACTIONS (1)
  - HEPATITIS CHOLESTATIC [None]
